FAERS Safety Report 14914425 (Version 1)
Quarter: 2018Q2

REPORT INFORMATION
  Report Type: Spontaneous
  Country: FR (occurrence: FR)
  Receive Date: 20180518
  Receipt Date: 20180518
  Transmission Date: 20180711
  Serious: No
  Sender: FDA-Public Use
  Company Number: FR-JAZZ-2018-FR-005027

PATIENT
  Age: 30 Year
  Sex: Female

DRUGS (3)
  1. MODIODAL [Concomitant]
     Active Substance: MODAFINIL
  2. CONCERTA LP [Concomitant]
     Active Substance: METHYLPHENIDATE HYDROCHLORIDE
  3. XYREM [Suspect]
     Active Substance: SODIUM OXYBATE
     Indication: PRODUCT USED FOR UNKNOWN INDICATION
     Dosage: 5.5 G, PER DAY
     Route: 048
     Dates: start: 201801

REACTIONS (2)
  - Dyspnoea [Unknown]
  - Hypertension [Unknown]

NARRATIVE: CASE EVENT DATE: 201801
